FAERS Safety Report 6713821-7 (Version None)
Quarter: 2010Q2

REPORT INFORMATION
  Report Type: 
  Country: None (occurrence: None)
  Receive Date: 20100506
  Receipt Date: 20100427
  Transmission Date: 20101027
  Serious: Yes (Death, Hospitalization, Other)
  Sender: FDA-Public Use
  Company Number: US-PFIZER INC-2010031191

PATIENT
  Sex: Male
  Weight: 60 kg

DRUGS (5)
  1. SUTENT [Suspect]
     Indication: OESOPHAGEAL CANCER METASTATIC
     Dosage: 37.5 MG, 1X/DAY
     Route: 048
     Dates: start: 20090831, end: 20100314
  2. TAXOL [Suspect]
     Indication: OESOPHAGEAL CANCER METASTATIC
     Dosage: 90 MG/M2, DAYS 1, 8, 15 FOR 4 CYCLES
     Route: 042
     Dates: start: 20090831, end: 20091208
  3. LEVAQUIN [Concomitant]
     Dosage: 500 MG, 1X/DAY
  4. SENOKOT [Concomitant]
  5. DURAGESIC-100 [Concomitant]
     Dosage: 50 UG, UNK

REACTIONS (7)
  - ATRIAL FIBRILLATION [None]
  - ATRIAL FLUTTER [None]
  - DEATH [None]
  - NON-CARDIAC CHEST PAIN [None]
  - OESOPHAGEAL FISTULA [None]
  - PLEURAL EFFUSION [None]
  - SUPRAVENTRICULAR TACHYCARDIA [None]
